FAERS Safety Report 13166084 (Version 2)
Quarter: 2017Q1

REPORT INFORMATION
  Report Type: Spontaneous
  Country: HU (occurrence: HU)
  Receive Date: 20170131
  Receipt Date: 20170208
  Transmission Date: 20170428
  Serious: Yes (Death, Other)
  Sender: FDA-Public Use
  Company Number: HU-ROCHE-1886015

PATIENT
  Age: 67 Year
  Sex: Female

DRUGS (1)
  1. AVASTIN [Suspect]
     Active Substance: BEVACIZUMAB
     Indication: NON-SMALL CELL LUNG CANCER
     Route: 042
     Dates: start: 201112, end: 201604

REACTIONS (3)
  - Circulatory collapse [Fatal]
  - Anal fistula [Unknown]
  - Neurological symptom [Recovered/Resolved]

NARRATIVE: CASE EVENT DATE: 201604
